FAERS Safety Report 6652005-8 (Version None)
Quarter: 2010Q1

REPORT INFORMATION
  Report Type: 
  Country: None (occurrence: None)
  Receive Date: 20100325
  Receipt Date: 20100315
  Transmission Date: 20100710
  Serious: Yes (Hospitalization)
  Sender: FDA-Public Use
  Company Number: DE-ABBOTT-08P-062-0485997-00

PATIENT
  Sex: Male

DRUGS (9)
  1. HUMIRA [Suspect]
     Indication: RHEUMATOID ARTHRITIS
     Route: 058
     Dates: start: 20070101
  2. NEXIUM [Concomitant]
     Indication: DRUG USE FOR UNKNOWN INDICATION
  3. IONOSTERIL 1/1 [Concomitant]
     Indication: DRUG USE FOR UNKNOWN INDICATION
     Route: 042
  4. MONOEMBOLEX 300 E [Concomitant]
     Indication: DRUG USE FOR UNKNOWN INDICATION
     Route: 058
  5. ARAVA [Concomitant]
     Indication: DRUG USE FOR UNKNOWN INDICATION
  6. ACICLOVIR 750MG IN 500ML NACL 0.9% [Concomitant]
     Indication: DRUG USE FOR UNKNOWN INDICATION
  7. ACETYLIC SALICYLATE ACID [Concomitant]
     Indication: DRUG USE FOR UNKNOWN INDICATION
  8. DECORTIN H [Concomitant]
     Indication: DRUG USE FOR UNKNOWN INDICATION
  9. ROCEPHIN [Concomitant]
     Indication: DRUG USE FOR UNKNOWN INDICATION

REACTIONS (4)
  - DEMENTIA [None]
  - HEMIPLEGIA [None]
  - MENTAL DISORDER DUE TO A GENERAL MEDICAL CONDITION [None]
  - VASCULITIS CEREBRAL [None]
